FAERS Safety Report 4943287-9 (Version None)
Quarter: 2006Q1

REPORT INFORMATION
  Report Type: 
  Country: None (occurrence: None)
  Receive Date: 20060303
  Receipt Date: 20060226
  Transmission Date: 20060701
  Serious: Yes (Life-Threatening)
  Sender: FDA-Public Use
  Company Number: THYM-10895

PATIENT
  Age: 65 Year
  Sex: Male
  Weight: 114.4 kg

DRUGS (1)
  1. THYMOGLOBULIN [Suspect]
     Indication: LIVER TRANSPLANT
     Dosage: 175 MG QD IV
     Route: 042
     Dates: start: 20060226

REACTIONS (4)
  - BLOOD POTASSIUM INCREASED [None]
  - PULSE ABSENT [None]
  - VENTRICULAR FIBRILLATION [None]
  - VENTRICULAR TACHYCARDIA [None]
